FAERS Safety Report 8460015-3 (Version None)
Quarter: 2012Q2

REPORT INFORMATION
  Report Type: 
  Country: None (occurrence: None)
  Receive Date: 20120622
  Receipt Date: 20120618
  Transmission Date: 20120825
  Serious: Yes (Other)
  Sender: FDA-Public Use
  Company Number: PHHY2012IN051954

PATIENT
  Age: 43 Year
  Sex: Female

DRUGS (3)
  1. CLOBAZAM [Suspect]
     Indication: EPILEPSY
     Dosage: 10 MG, BID
  2. OXCARBAZEPINE [Suspect]
     Indication: EPILEPSY
     Dosage: 600 MG, BID
  3. ZONISAMIDE [Suspect]
     Indication: EPILEPSY
     Dosage: 100 MG, QD

REACTIONS (10)
  - BEDRIDDEN [None]
  - OSTEOPOROSIS [None]
  - OSTEOMALACIA [None]
  - GROIN PAIN [None]
  - GAIT DISTURBANCE [None]
  - HYPERPARATHYROIDISM [None]
  - WEIGHT BEARING DIFFICULTY [None]
  - VITAMIN D DECREASED [None]
  - FEMORAL NECK FRACTURE [None]
  - BROWN TUMOUR [None]
